FAERS Safety Report 4888057-5 (Version None)
Quarter: 2006Q1

REPORT INFORMATION
  Report Type: 
  Country: None (occurrence: None)
  Receive Date: 20060123
  Receipt Date: 20051010
  Transmission Date: 20060701
  Serious: Yes (Hospitalization)
  Sender: FDA-Public Use
  Company Number: US-MERCK-0510USA06480

PATIENT
  Age: 76 Year
  Sex: Female
  Weight: 91 kg

DRUGS (21)
  1. NITROQUICK [Concomitant]
     Route: 065
  2. ALBUTEROL [Concomitant]
     Route: 065
  3. VIOXX [Suspect]
     Route: 048
  4. METOPROLOL [Concomitant]
     Route: 065
  5. AMBIEN [Concomitant]
     Route: 065
  6. AMARYL [Concomitant]
     Route: 065
  7. DICYCLOMINE HYDROCHLORIDE [Concomitant]
     Route: 065
  8. INSULIN [Concomitant]
     Route: 065
  9. NORVASC [Concomitant]
     Route: 065
  10. LIPITOR [Concomitant]
     Route: 065
  11. FUROSEMIDE [Concomitant]
     Route: 065
  12. ISOSORBIDE MONONITRATE [Concomitant]
     Route: 065
  13. DIOVAN [Concomitant]
     Route: 065
  14. PRILOSEC [Concomitant]
     Route: 048
  15. DOCUSATE SODIUM [Concomitant]
     Route: 065
  16. AVANDIA [Concomitant]
     Route: 065
  17. PENTOXIFYLLINE [Concomitant]
     Route: 065
  18. LEVAQUIN [Concomitant]
     Route: 065
  19. COZAAR [Concomitant]
     Route: 048
  20. NITRO-DUR [Concomitant]
     Route: 065
  21. TRAMADOL HYDROCHLORIDE [Concomitant]
     Route: 065

REACTIONS (26)
  - ANAEMIA [None]
  - AORTIC VALVE DISEASE [None]
  - AORTIC VALVE STENOSIS [None]
  - APPENDICITIS [None]
  - CARDIAC DISORDER [None]
  - CARDIAC FAILURE CONGESTIVE [None]
  - CARDIOMYOPATHY [None]
  - CHEST PAIN [None]
  - CHRONIC OBSTRUCTIVE PULMONARY DISEASE [None]
  - CORONARY ARTERY DISEASE [None]
  - DECUBITUS ULCER [None]
  - DIABETES MELLITUS [None]
  - FUNGAL INFECTION [None]
  - HAEMATURIA [None]
  - HYPERHOMOCYSTEINAEMIA [None]
  - HYPERTENSION [None]
  - HYPOMAGNESAEMIA [None]
  - HYPOTENSION [None]
  - LEUKOCYTOSIS [None]
  - LUNG INFILTRATION [None]
  - MYOCARDIAL INFARCTION [None]
  - PLEURAL EFFUSION [None]
  - POSTOPERATIVE FEVER [None]
  - RENAL FAILURE ACUTE [None]
  - URINARY TRACT INFECTION [None]
  - VITAMIN B12 DEFICIENCY [None]
